FAERS Safety Report 23950390 (Version 1)
Quarter: 2024Q2

REPORT INFORMATION
  Report Type: Spontaneous
  Country: US (occurrence: US)
  Receive Date: 20240607
  Receipt Date: 20240607
  Transmission Date: 20240716
  Serious: Yes (Other)
  Sender: FDA-Public Use
  Company Number: US-MYLANLABS-2024M1051857

PATIENT
  Age: 29 Year
  Sex: Female

DRUGS (13)
  1. GABAPENTIN [Suspect]
     Active Substance: GABAPENTIN
     Indication: Nipple pain
     Dosage: UNK
     Route: 065
  2. DOXEPIN [Suspect]
     Active Substance: DOXEPIN
     Indication: Nipple pain
     Dosage: UNK
     Route: 061
  3. LIDOCAINE [Suspect]
     Active Substance: LIDOCAINE
     Indication: Nipple pain
     Dosage: UNK, CREAM
     Route: 061
  4. NIFEDIPINE [Suspect]
     Active Substance: NIFEDIPINE
     Indication: Raynaud^s phenomenon
     Dosage: 30 MILLIGRAM, QD
     Route: 065
  5. NIFEDIPINE [Suspect]
     Active Substance: NIFEDIPINE
     Dosage: 90 MILLIGRAM, QD, TITRATED UP TO 400 MG DAILY
     Route: 065
  6. VITAMIN B12 [Suspect]
     Active Substance: CYANOCOBALAMIN
     Indication: Nipple pain
     Dosage: UNK
     Route: 065
  7. LIDOCAINE [Concomitant]
     Active Substance: LIDOCAINE
     Indication: Nipple pain
     Dosage: UNK
     Route: 065
  8. TOPIRAMATE [Concomitant]
     Active Substance: TOPIRAMATE
     Indication: Nipple pain
     Dosage: UNK
     Route: 065
  9. ROPIVACAINE [Concomitant]
     Active Substance: ROPIVACAINE
     Indication: Nipple pain
     Dosage: 6 MILLILITER, MIXED WITH 1:200000  EPINEPHRINE
     Route: 065
  10. ROPIVACAINE [Concomitant]
     Active Substance: ROPIVACAINE
     Indication: Nipple pain
     Dosage: 2 MILLILITER, MIXED WITH DEXAMETHASONE
     Route: 065
  11. EPINEPHRINE [Concomitant]
     Active Substance: EPINEPHRINE
     Indication: Nipple pain
     Dosage: UNK, MIXED WITH ROPIVACAINE
     Route: 065
  12. DEXAMETHASONE [Concomitant]
     Active Substance: DEXAMETHASONE
     Indication: Nipple pain
     Dosage: 1 MILLILITER, MIXED WITH ROPIVACAINE
     Route: 065
  13. DULOXETINE [Concomitant]
     Active Substance: DULOXETINE
     Indication: Nipple pain
     Dosage: UNK
     Route: 065

REACTIONS (4)
  - Therapy non-responder [Unknown]
  - Treatment noncompliance [Unknown]
  - Product dose omission in error [Unknown]
  - Off label use [Unknown]
